FAERS Safety Report 7179292-4 (Version None)
Quarter: 2010Q4

REPORT INFORMATION
  Report Type: 
  Country: None (occurrence: None)
  Receive Date: 20101221
  Receipt Date: 20101208
  Transmission Date: 20110411
  Serious: Yes (Other)
  Sender: FDA-Public Use
  Company Number: PHHY2010FR84259

PATIENT
  Age: 78 Year
  Sex: Female
  Weight: 64 kg

DRUGS (3)
  1. EXELON [Suspect]
     Indication: DEMENTIA ALZHEIMER'S TYPE
     Dosage: 4.6 MG/24H
     Route: 062
     Dates: start: 20100601
  2. LEXOMIL [Concomitant]
     Indication: INSOMNIA
     Dosage: 6 MG, UNK
  3. STILNOX [Concomitant]
     Indication: INSOMNIA
     Dosage: 10 MG, UNK

REACTIONS (1)
  - DYSPEPSIA [None]
